FAERS Safety Report 25134089 (Version 1)
Quarter: 2025Q1

REPORT INFORMATION
  Report Type: Spontaneous
  Country: FR (occurrence: FR)
  Receive Date: 20250328
  Receipt Date: 20250328
  Transmission Date: 20250408
  Serious: Yes (Hospitalization)
  Sender: MYLAN
  Company Number: None

PATIENT
  Age: 13 Year
  Sex: Male
  Weight: 40.8 kg

DRUGS (11)
  1. METHOTREXATE [Suspect]
     Active Substance: METHOTREXATE
     Indication: Acute lymphocytic leukaemia
     Dates: start: 20250123, end: 20250124
  2. ONDANSETRON [Concomitant]
     Active Substance: ONDANSETRON
     Dosage: 16 MILLIGRAM, QD
     Dates: start: 20250123, end: 20250130
  3. METOCLOPRAMIDE [Concomitant]
     Active Substance: METOCLOPRAMIDE
     Dosage: 5 MILLIGRAM, Q8H
     Dates: start: 20250123, end: 20250130
  4. NALBUPHINE HYDROCHLORIDE [Concomitant]
     Active Substance: NALBUPHINE HYDROCHLORIDE
     Dates: start: 20250124, end: 20250124
  5. MIDAZOLAM [Concomitant]
     Active Substance: MIDAZOLAM
     Dates: start: 20250124, end: 20250124
  6. ACETAMINOPHEN [Concomitant]
     Active Substance: ACETAMINOPHEN
     Dates: start: 20250123, end: 20250125
  7. SODIUM BICARBONATE [Concomitant]
     Active Substance: SODIUM BICARBONATE
     Dosage: 1300 MILLILITER, QD (24 HR)
     Dates: start: 20250123, end: 20250130
  8. DEXTROSE [Concomitant]
     Active Substance: DEXTROSE MONOHYDRATE
     Dosage: 2700 MILLILITER, QD (24 HR)
  9. LEUCOVORIN CALCIUM [Concomitant]
     Active Substance: LEUCOVORIN CALCIUM
     Dosage: 70 MILLIGRAM, Q6H
     Dates: start: 20250125, end: 20250130
  10. MERCAPTOPURINE [Concomitant]
     Active Substance: MERCAPTOPURINE
     Indication: Acute lymphocytic leukaemia
  11. MERCAPTOPURINE [Concomitant]
     Active Substance: MERCAPTOPURINE

REACTIONS (3)
  - Drug clearance decreased [Recovered/Resolved]
  - Overdose [Recovered/Resolved]
  - Chemotherapeutic drug level above therapeutic [Recovered/Resolved]

NARRATIVE: CASE EVENT DATE: 20250125
